FAERS Safety Report 14963083 (Version 1)
Quarter: 2018Q2

REPORT INFORMATION
  Report Type: Spontaneous
  Country: FR (occurrence: FR)
  Receive Date: 20180601
  Receipt Date: 20180601
  Transmission Date: 20180711
  Serious: Yes (Death)
  Sender: FDA-Public Use
  Company Number: FR-LINDE-FR-LHC-2018123

PATIENT
  Age: 19 Year
  Sex: Male

DRUGS (1)
  1. NITROUS OXIDE (GENERIC) [Suspect]
     Active Substance: NITROUS OXIDE
     Indication: SUBSTANCE USE
     Route: 055
     Dates: start: 20180511, end: 20180511

REACTIONS (3)
  - Cardiac arrest [Fatal]
  - Euphoric mood [Unknown]
  - Substance use [Fatal]

NARRATIVE: CASE EVENT DATE: 20180511
